FAERS Safety Report 8555121-9 (Version None)
Quarter: 2012Q3

REPORT INFORMATION
  Report Type: 
  Country: None (occurrence: None)
  Receive Date: 20120731
  Receipt Date: 20120725
  Transmission Date: 20120928
  Serious: Yes (Hospitalization, Disabling, Other)
  Sender: FDA-Public Use
  Company Number: CA-CELGENEUS-028-20785-12072225

PATIENT
  Sex: Male

DRUGS (1)
  1. THALOMID [Suspect]
     Dosage: 50 MILLIGRAM
     Route: 048
     Dates: start: 20120626, end: 20120723

REACTIONS (4)
  - DEHYDRATION [None]
  - FATIGUE [None]
  - RECURRENT CANCER [None]
  - RENAL DISORDER [None]
